FAERS Safety Report 10153238 (Version 2)
Quarter: 2014Q2

REPORT INFORMATION
  Report Type: Spontaneous
  Country: US (occurrence: US)
  Receive Date: 20140505
  Receipt Date: 20140527
  Transmission Date: 20141212
  Serious: Yes (Other)
  Sender: FDA-Public Use
  Company Number: CHPA2014US005944

PATIENT
  Age: 56 Year
  Sex: Female

DRUGS (2)
  1. TRANSDERM SCOP [Suspect]
     Indication: VERTIGO
     Dosage: 1 DF, Q72H
     Route: 065
     Dates: start: 201403
  2. TRANSDERM SCOP [Suspect]
     Indication: OFF LABEL USE

REACTIONS (5)
  - Application site pruritus [Recovering/Resolving]
  - Application site rash [Recovering/Resolving]
  - Application site erythema [Recovering/Resolving]
  - Application site pain [Recovering/Resolving]
  - Vomiting [Recovered/Resolved]
